FAERS Safety Report 24183846 (Version 3)
Quarter: 2024Q3

REPORT INFORMATION
  Report Type: Report from Study
  Country: EG (occurrence: EG)
  Receive Date: 20240807
  Receipt Date: 20240912
  Transmission Date: 20241016
  Serious: Yes (Hospitalization, Other)
  Sender: NOVARTIS
  Company Number: EG-002147023-NVSC2024EG158647

PATIENT
  Sex: Male
  Weight: 71 kg

DRUGS (7)
  1. ENTRESTO [Suspect]
     Active Substance: SACUBITRIL\VALSARTAN
     Indication: Cardiac failure
     Dosage: 200 MG, QD (AS ? TAB. 4 TIMES DAILY)
     Route: 048
     Dates: start: 2023
  2. ENTRESTO [Suspect]
     Active Substance: SACUBITRIL\VALSARTAN
     Dosage: 50 MG, QID
     Route: 048
  3. ENTRESTO [Suspect]
     Active Substance: SACUBITRIL\VALSARTAN
     Indication: Cardiac failure
     Dosage: 100 MG, QD (50MG 1 TAB. TWICE DAILY)
     Route: 048
     Dates: start: 2022, end: 2023
  4. VASTAREL [Suspect]
     Active Substance: TRIMETAZIDINE DIHYDROCHLORIDE
     Indication: Ill-defined disorder
     Dosage: UNK UNK, QD
     Route: 048
     Dates: start: 2021
  5. EZETIMIBE\SIMVASTATIN [Suspect]
     Active Substance: EZETIMIBE\SIMVASTATIN
     Indication: Blood cholesterol abnormal
     Dosage: UNK, QD
     Route: 048
     Dates: start: 2021
  6. FENOFIBRATE [Suspect]
     Active Substance: FENOFIBRATE
     Indication: Lipids abnormal
     Dosage: 300 MG, QD
     Route: 048
     Dates: start: 2021
  7. BETAHISTINE [Suspect]
     Active Substance: BETAHISTINE
     Indication: Dizziness
     Dosage: 16 MG, QD
     Route: 048
     Dates: start: 2021

REACTIONS (6)
  - Pulmonary oedema [Unknown]
  - Blood pressure decreased [Recovering/Resolving]
  - Wrong technique in product usage process [Unknown]
  - Off label use [Unknown]
  - Mobility decreased [Unknown]
  - Dizziness [Unknown]

NARRATIVE: CASE EVENT DATE: 20220101
